FAERS Safety Report 19056162 (Version 3)
Quarter: 2021Q3

REPORT INFORMATION
  Report Type: Spontaneous
  Country: PT (occurrence: PT)
  Receive Date: 20210325
  Receipt Date: 20210712
  Transmission Date: 20211014
  Serious: Yes (Life-Threatening, Other)
  Sender: FDA-Public Use
  Company Number: PT-ASTRAZENECA-2021A175120

PATIENT
  Age: 73 Year
  Sex: Male
  Weight: 64 kg

DRUGS (7)
  1. ZONISAMIDE. [Concomitant]
     Active Substance: ZONISAMIDE
  2. MESALAZINE [Concomitant]
     Active Substance: MESALAMINE
  3. OMEPRAZOLE. [Suspect]
     Active Substance: OMEPRAZOLE
     Route: 048
  4. FLUOXETINE [Concomitant]
     Active Substance: FLUOXETINE HYDROCHLORIDE
     Route: 048
  5. TRANDOLAPRIL. [Concomitant]
     Active Substance: TRANDOLAPRIL
     Route: 065
  6. PREDNISOLONE. [Concomitant]
     Active Substance: PREDNISOLONE
  7. METEX PEN [Suspect]
     Active Substance: METHOTREXATE
     Indication: RHEUMATOID ARTHRITIS
     Dosage: 10 MG, 15/15 DIAS
     Route: 030
     Dates: start: 20170923, end: 20200926

REACTIONS (10)
  - Weight decreased [Recovered/Resolved]
  - Muscular weakness [Recovered/Resolved]
  - Balance disorder [Recovered/Resolved]
  - Epistaxis [Not Recovered/Not Resolved]
  - Confusional state [Recovered/Resolved]
  - Contusion [Not Recovered/Not Resolved]
  - Speech disorder [Recovered/Resolved]
  - Restless legs syndrome [Recovered/Resolved]
  - Tremor [Recovered/Resolved]
  - Muscular weakness [Recovered/Resolved]

NARRATIVE: CASE EVENT DATE: 20171101
